FAERS Safety Report 21728312 (Version 11)
Quarter: 2023Q4

REPORT INFORMATION
  Report Type: Spontaneous
  Country: US (occurrence: US)
  Receive Date: 20221214
  Receipt Date: 20231107
  Transmission Date: 20240110
  Serious: No
  Sender: FDA-Public Use
  Company Number: US-PFIZER INC-PV202200122941

PATIENT
  Age: 80 Year
  Sex: Female
  Weight: 47.63 kg

DRUGS (5)
  1. PREMARIN [Suspect]
     Active Substance: ESTROGENS, CONJUGATED
     Dosage: 0.3 MG, 1X/DAY, (ONCE DAILY, MONDAY TO FRIDAY)
  2. PREMARIN [Suspect]
     Active Substance: ESTROGENS, CONJUGATED
     Dosage: UNK, (6 DAYS A WEEK)
  3. PREMARIN [Suspect]
     Active Substance: ESTROGENS, CONJUGATED
     Dosage: UNK, (5 DAYS A WEEK)
  4. PREMARIN [Suspect]
     Active Substance: ESTROGENS, CONJUGATED
     Dosage: 0.3 MG(1 TAB DAILY ON MONDAY-FRIDAY)
  5. PREMARIN [Suspect]
     Active Substance: ESTROGENS, CONJUGATED
     Dosage: HALVED A COUPLE OF PILLS INTO 3 PIECES

REACTIONS (5)
  - Hypoacusis [Unknown]
  - Anxiety [Unknown]
  - Nervousness [Unknown]
  - Memory impairment [Unknown]
  - Wrong technique in product usage process [Unknown]
